FAERS Safety Report 20077790 (Version 5)
Quarter: 2022Q1

REPORT INFORMATION
  Report Type: Report from Study
  Country: US (occurrence: US)
  Receive Date: 20211116
  Receipt Date: 20220223
  Transmission Date: 20220423
  Serious: Yes (Hospitalization)
  Sender: FDA-Public Use
  Company Number: US-BoehringerIngelheim-2021-BI-136009

PATIENT
  Sex: Female

DRUGS (3)
  1. OFEV [Suspect]
     Active Substance: NINTEDANIB
     Indication: Idiopathic pulmonary fibrosis
     Route: 048
     Dates: start: 20201102
  2. ORENITRAM [Suspect]
     Active Substance: TREPROSTINIL
     Indication: Product used for unknown indication
  3. ORENITRAM [Suspect]
     Active Substance: TREPROSTINIL

REACTIONS (9)
  - Haemorrhage [Unknown]
  - Oxygen saturation decreased [Unknown]
  - Ulcer haemorrhage [Unknown]
  - Dyspnoea [Unknown]
  - Dyspnoea exertional [Unknown]
  - Energy increased [Unknown]
  - Malaise [Unknown]
  - Nausea [Unknown]
  - Chills [Unknown]
